FAERS Safety Report 17626681 (Version 1)
Quarter: 2020Q2

REPORT INFORMATION
  Report Type: Report from Study
  Country: CA (occurrence: CA)
  Receive Date: 20200405
  Receipt Date: 20200405
  Transmission Date: 20200713
  Serious: Yes (Death, Other)
  Sender: FDA-Public Use
  Company Number: PHHY2019CA204015

PATIENT
  Sex: Female

DRUGS (2)
  1. ERELZI [Suspect]
     Active Substance: ETANERCEPT-SZZS
     Dosage: 50 MG (10 DAYS)
     Route: 058
  2. ERELZI [Suspect]
     Active Substance: ETANERCEPT-SZZS
     Indication: RHEUMATOID ARTHRITIS
     Dosage: 50 MG (10 DAYS)
     Route: 058
     Dates: start: 20190720

REACTIONS (3)
  - Arthralgia [Recovered/Resolved]
  - Rheumatoid arthritis [Unknown]
  - Death [Fatal]

NARRATIVE: CASE EVENT DATE: 2019
